FAERS Safety Report 5705522-9 (Version None)
Quarter: 2008Q2

REPORT INFORMATION
  Report Type: 
  Country: None (occurrence: None)
  Receive Date: 20080415
  Receipt Date: 20080415
  Transmission Date: 20081010
  Serious: Yes (Hospitalization)
  Sender: FDA-Public Use
  Company Number: None

PATIENT
  Age: 70 Year
  Sex: Male
  Weight: 73.9 kg

DRUGS (9)
  1. DEXTROSE/HEPARIN SODIUM 250000 IN D5W 500ML PREMIX [Suspect]
     Indication: PREOPERATIVE CARE
     Dosage: TITRATE OTHER IV
     Route: 042
     Dates: start: 20080306, end: 20080318
  2. ALBUTEROL [Concomitant]
  3. ACETAMINOPHEN AND HYDROCODONE BITARTRATE [Concomitant]
  4. ARTIFICIAL TEARS (REGULAR) [Concomitant]
  5. CYANOCOBALAMIN [Concomitant]
  6. DEXTROSE [Concomitant]
  7. FOLIC ACID [Concomitant]
  8. GABAPENTIN [Concomitant]
  9. HEPARIN [Concomitant]

REACTIONS (5)
  - ACTIVATED PARTIAL THROMBOPLASTIN TIME PROLONGED [None]
  - HAEMOGLOBIN DECREASED [None]
  - HYPOTENSION [None]
  - LEFT VENTRICULAR DYSFUNCTION [None]
  - THROMBOCYTOPENIA [None]
